FAERS Safety Report 7423825-7 (Version None)
Quarter: 2011Q2

REPORT INFORMATION
  Report Type: 
  Country: None (occurrence: None)
  Receive Date: 20110419
  Receipt Date: 20110408
  Transmission Date: 20111010
  Serious: Yes (Other)
  Sender: FDA-Public Use
  Company Number: PHHY2011US09411

PATIENT
  Sex: Female

DRUGS (1)
  1. GILENYA [Suspect]
     Indication: MULTIPLE SCLEROSIS
     Dosage: 0.5 MG, QD
     Route: 048
     Dates: start: 20101209, end: 20110407

REACTIONS (9)
  - SUICIDAL IDEATION [None]
  - GAIT DISTURBANCE [None]
  - HEADACHE [None]
  - BACK PAIN [None]
  - DEPRESSION [None]
  - DECREASED APPETITE [None]
  - INSOMNIA [None]
  - LIMB DISCOMFORT [None]
  - DIARRHOEA [None]
